FAERS Safety Report 21340545 (Version 1)
Quarter: 2022Q3

REPORT INFORMATION
  Report Type: Spontaneous
  Country: US (occurrence: None)
  Receive Date: 20220915
  Receipt Date: 20220915
  Transmission Date: 20221027
  Serious: No
  Sender: FDA-Public Use
  Company Number: None

PATIENT
  Age: 67 Year
  Sex: Female

DRUGS (25)
  1. GLATOPA [Suspect]
     Active Substance: GLATIRAMER ACETATE
     Dosage: FREQUENCY : 3 TIMES A WEEK;?
     Route: 058
     Dates: start: 201805, end: 20180901
  2. ASPIRIN [Concomitant]
     Active Substance: ASPIRIN
  3. DETROL [Concomitant]
     Active Substance: TOLTERODINE TARTRATE
  4. DILTIAZEM [Concomitant]
     Active Substance: DILTIAZEM
  5. DONEPEZIL [Concomitant]
     Active Substance: DONEPEZIL
  6. ELIQUIS [Concomitant]
     Active Substance: APIXABAN
  7. FLUOZETINE [Concomitant]
  8. GABAPENTIN [Concomitant]
     Active Substance: GABAPENTIN
  9. HUMALOG [Concomitant]
     Active Substance: INSULIN LISPRO
  10. ICOSAPENT ETHYL [Concomitant]
     Active Substance: ICOSAPENT ETHYL
  11. ALBUTEROL\IPRATROPIUM [Concomitant]
     Active Substance: ALBUTEROL\IPRATROPIUM
  12. LANTUS SOLOSTAR [Concomitant]
     Active Substance: INSULIN GLARGINE
  13. LASIX [Concomitant]
     Active Substance: FUROSEMIDE
  14. LISINOPRIL [Concomitant]
     Active Substance: LISINOPRIL
  15. METOPROLOL [Concomitant]
     Active Substance: METOPROLOL
  16. NYSTATIN [Concomitant]
     Active Substance: NYSTATIN
  17. OMEPRAZOLE [Concomitant]
     Active Substance: OMEPRAZOLE
  18. OZEMPIC [Concomitant]
     Active Substance: SEMAGLUTIDE
  19. PLAVIX [Concomitant]
     Active Substance: CLOPIDOGREL BISULFATE
  20. ROSUVASTATIN [Concomitant]
     Active Substance: ROSUVASTATIN
  21. STEGLATRO [Concomitant]
     Active Substance: ERTUGLIFLOZIN PIDOLATE
  22. SYNTHROID [Concomitant]
     Active Substance: LEVOTHYROXINE SODIUM
  23. TOLTERODINE [Concomitant]
     Active Substance: TOLTERODINE
  24. TRAZODONE [Concomitant]
     Active Substance: TRAZODONE HYDROCHLORIDE
  25. XANAX [Concomitant]
     Active Substance: ALPRAZOLAM

REACTIONS (2)
  - Cardiac disorder [None]
  - Therapy interrupted [None]

NARRATIVE: CASE EVENT DATE: 20220901
